FAERS Safety Report 8933317 (Version 1)
Quarter: 2012Q4

REPORT INFORMATION
  Report Type: 
  Country: DE (occurrence: DE)
  Receive Date: 20121129
  Receipt Date: 20121129
  Transmission Date: 20130627
  Serious: Yes (Hospitalization, Other)
  Sender: FDA-Public Use
  Company Number: PHHY2012DE108175

PATIENT
  Sex: Female

DRUGS (5)
  1. LEPONEX [Suspect]
     Dosage: 50 mg, QD
  2. LEPONEX [Suspect]
     Dosage: 75 mg, UNK
  3. LEPONEX [Suspect]
     Dosage: 150 mg, UNK
  4. ZYPREXA [Concomitant]
     Dosage: UNK
  5. AMISULPRIDE [Concomitant]
     Dosage: UNK

REACTIONS (11)
  - Hallucination, auditory [Unknown]
  - Abdominal pain upper [Unknown]
  - Lipase increased [Recovering/Resolving]
  - C-reactive protein increased [Unknown]
  - Myoclonus [Unknown]
  - Hypotension [Unknown]
  - Blood creatinine increased [Unknown]
  - Malaise [Unknown]
  - Antipsychotic drug level increased [Unknown]
  - Dizziness [Unknown]
  - Fatigue [Unknown]
